FAERS Safety Report 4442204-8 (Version None)
Quarter: 2004Q3

REPORT INFORMATION
  Report Type: 
  Country: None (occurrence: None)
  Receive Date: 20040903
  Receipt Date: 20040727
  Transmission Date: 20050211
  Serious: Yes (Other)
  Sender: FDA-Public Use
  Company Number: 2004UW15810

PATIENT
  Age: 63 Year
  Sex: Male
  Weight: 99.7913 kg

DRUGS (12)
  1. CRESTOR [Suspect]
     Indication: HIGH DENSITY LIPOPROTEIN DECREASED
     Dosage: 10 MG DAILY PO
     Route: 048
     Dates: start: 20040506
  2. NORVASC [Concomitant]
  3. TRIAMTERENE AND HYDROCHLORITHIAZID ^HARRIS^ [Concomitant]
  4. PREVACID [Concomitant]
  5. FLOMAX [Concomitant]
  6. NO MATCH [Concomitant]
  7. ALLOPURINOL [Concomitant]
  8. ALTACE [Concomitant]
  9. ASPIRIN [Concomitant]
  10. MAG-64 [Concomitant]
  11. AMARYL [Concomitant]
  12. MULTI-VITAMINS [Concomitant]

REACTIONS (3)
  - JOINT SWELLING [None]
  - MUSCLE SPASMS [None]
  - OEDEMA PERIPHERAL [None]
